FAERS Safety Report 6356805-3 (Version None)
Quarter: 2009Q3

REPORT INFORMATION
  Report Type: 
  Country: None (occurrence: None)
  Receive Date: 20090915
  Receipt Date: 20090907
  Transmission Date: 20100115
  Serious: Yes (Death, Hospitalization)
  Sender: FDA-Public Use
  Company Number: ES-ELI_LILLY_AND_COMPANY-ES200908006262

PATIENT
  Age: 82 Year
  Sex: Female

DRUGS (5)
  1. FORTEO [Suspect]
     Indication: OSTEOPOROSIS
     Dosage: 20 UG, UNKNOWN
     Route: 058
     Dates: start: 20080303
  2. SERTRALINE HCL [Concomitant]
     Indication: DEPRESSION
  3. DAFLON [Concomitant]
  4. CALCIO [Concomitant]
  5. PARACETAMOL [Concomitant]

REACTIONS (2)
  - ENDOCARDITIS [None]
  - SEPSIS [None]
